FAERS Safety Report 5424583-8 (Version None)
Quarter: 2007Q3

REPORT INFORMATION
  Report Type: 
  Country: None (occurrence: None)
  Receive Date: 20070822
  Receipt Date: 20070810
  Transmission Date: 20080115
  Serious: No
  Sender: FDA-Public Use
  Company Number: TPA2007A01688

PATIENT
  Sex: Female

DRUGS (2)
  1. ROZEREM [Suspect]
     Indication: INSOMNIA
     Dosage: 8 MG, QHS, PER ORAL
     Route: 048
     Dates: start: 20070803, end: 20070806
  2. ALLEGRA [Concomitant]

REACTIONS (7)
  - CONDITION AGGRAVATED [None]
  - DRUG DOSE OMISSION [None]
  - EYELID DISORDER [None]
  - FEELING HOT [None]
  - PRURITUS [None]
  - ROSACEA [None]
  - SWELLING [None]
